FAERS Safety Report 7130420-6 (Version None)
Quarter: 2010Q4

REPORT INFORMATION
  Report Type: 
  Country: None (occurrence: None)
  Receive Date: 20101116
  Receipt Date: 20101108
  Transmission Date: 20110411
  Serious: Yes (Hospitalization)
  Sender: FDA-Public Use
  Company Number: 2010EU005901

PATIENT
  Sex: Female

DRUGS (2)
  1. TACROLIMUS [Suspect]
     Indication: DERMATITIS ATOPIC
     Dosage: 0.03 %,
     Dates: start: 20080101
  2. PIMECROLIMUS (PIMECROLIMUS, PIMECROLIMUS) [Concomitant]

REACTIONS (1)
  - HOSPITALISATION [None]
